FAERS Safety Report 7836985-0 (Version None)
Quarter: 2011Q4

REPORT INFORMATION
  Report Type: 
  Country: None (occurrence: None)
  Receive Date: 20111024
  Receipt Date: 20110119
  Transmission Date: 20120403
  Serious: No
  Sender: FDA-Public Use
  Company Number: US-ABBOTT-11P-163-0696118-00

PATIENT
  Sex: Female
  Weight: 62.652 kg

DRUGS (2)
  1. CALCITRATE [Concomitant]
     Indication: MINERAL SUPPLEMENTATION
  2. LUPRON DEPOT [Suspect]
     Indication: UTERINE LEIOMYOMA
     Dates: start: 20101015

REACTIONS (3)
  - HEADACHE [None]
  - ARTHRALGIA [None]
  - OSTEOPENIA [None]
